FAERS Safety Report 9252690 (Version 2)
Quarter: 2013Q2

REPORT INFORMATION
  Report Type: Spontaneous
  Country: US (occurrence: US)
  Receive Date: 20130424
  Receipt Date: 20130503
  Transmission Date: 20140414
  Serious: Yes (Hospitalization, Other)
  Sender: FDA-Public Use
  Company Number: US-ELI_LILLY_AND_COMPANY-US201304005295

PATIENT
  Age: 86 Year
  Sex: Male

DRUGS (3)
  1. HUMALOG LISPRO [Suspect]
     Dosage: 10 U, QD
     Route: 058
  2. LANTUS [Concomitant]
     Dosage: 10 U, QD
     Route: 058
  3. FLUTICASONE PROPIONATE [Concomitant]
     Indication: NASAL CONGESTION
     Dosage: UNK
     Route: 045
     Dates: start: 20130408, end: 20130411

REACTIONS (5)
  - Hyperglycaemia [Recovered/Resolved]
  - Pneumonia [Recovered/Resolved]
  - Productive cough [Unknown]
  - Sputum discoloured [Unknown]
  - Nasal congestion [Unknown]
